FAERS Safety Report 8793348 (Version 3)
Quarter: 2012Q4

REPORT INFORMATION
  Report Type: 
  Country: US (occurrence: US)
  Receive Date: 20120918
  Receipt Date: 20121218
  Transmission Date: 20130627
  Serious: Yes (Death, Hospitalization, Other)
  Sender: FDA-Public Use
  Company Number: US-AMGEN-USASP2012058072

PATIENT
  Age: 49 Year
  Sex: Male

DRUGS (21)
  1. PROCRIT [Suspect]
     Indication: PRODUCT USED FOR UNKNOWN INDICATION
     Dosage: 60000 unit, qwk
     Route: 058
     Dates: start: 20100625, end: 201112
  2. ARANESP [Concomitant]
  3. VIDAZA [Concomitant]
     Dosage: every four week
     Dates: start: 20110628, end: 201110
  4. HYDREA [Concomitant]
     Dosage: one daily
     Route: 048
     Dates: start: 20111018, end: 201111
  5. COUMADIN                           /00014802/ [Concomitant]
     Dosage: 5 mg, qd
     Route: 048
  6. DEXAMETHASONE [Concomitant]
     Dosage: 4 mg, bid
     Route: 048
  7. FUROSEMIDE [Concomitant]
     Dosage: 20 mg, bid
     Route: 048
  8. IMODIUM A-D [Concomitant]
     Dosage: PRN
     Route: 048
  9. LORAZEPAM [Concomitant]
     Dosage: 0.5 mg, q8h PRN
     Route: 048
  10. METHADONE HCL [Concomitant]
     Dosage: 10 mg, tid PRN
     Route: 048
  11. METOPROLOL TARTRATE [Concomitant]
     Dosage: 50 mg, bid
     Route: 048
  12. MORPHINE SULFATE [Concomitant]
     Dosage: 30 mg, qd PRN
     Route: 048
  13. OMEPRAZOLE [Concomitant]
     Dosage: 20 mg, bid
     Route: 048
  14. PRILOSEC                           /00661201/ [Concomitant]
     Dosage: 20 mg, delayed release bid
     Route: 048
  15. PROMETHAZINE HCL [Concomitant]
     Dosage: 12.5 mg, q6h
     Route: 048
  16. REGLAN                             /00041901/ [Concomitant]
     Dosage: 10 mg, tid
     Route: 048
  17. RESTORIL                           /00054301/ [Concomitant]
     Dosage: at bedtime PRN
     Route: 048
  18. SENOKOT                            /00142201/ [Concomitant]
     Dosage: UNK UNK, qd PRN
     Route: 048
  19. SPIRONOLACTONE [Concomitant]
     Dosage: 25 mg, qd
     Route: 048
  20. VALIUM                             /00017001/ [Concomitant]
     Dosage: 5 mg, PRN
     Route: 048
  21. ZOFRAN                             /00955301/ [Concomitant]
     Dosage: 8 mg, qd PRN

REACTIONS (7)
  - Death [Fatal]
  - Fatigue [Recovered/Resolved]
  - Dyspnoea [Recovered/Resolved]
  - Myeloproliferative disorder [Unknown]
  - Chronic myelomonocytic leukaemia [Unknown]
  - Myelodysplastic syndrome [Unknown]
  - Performance status decreased [Unknown]
